FAERS Safety Report 4819084-1 (Version None)
Quarter: 2005Q4

REPORT INFORMATION
  Report Type: 
  Country: None (occurrence: None)
  Receive Date: 20051102
  Receipt Date: 20051102
  Transmission Date: 20060501
  Serious: Yes (Life-Threatening, Hospitalization)
  Sender: FDA-Public Use
  Company Number: None

PATIENT
  Age: 85 Year
  Sex: Female
  Weight: 51.2 kg

DRUGS (5)
  1. AMIODARONE [Suspect]
     Indication: ATRIAL FIBRILLATION
     Dosage: IV DRIP BOLUS 150MG
     Route: 041
     Dates: start: 20050819
  2. DECADRON SRC [Concomitant]
  3. ALBUTEROL [Concomitant]
  4. SOLU-MEDROL [Concomitant]
  5. APRESOLINE [Concomitant]

REACTIONS (4)
  - BLOOD PRESSURE INCREASED [None]
  - FLUSHING [None]
  - INFUSION RELATED REACTION [None]
  - RESUSCITATION [None]
